FAERS Safety Report 7329237-9 (Version None)
Quarter: 2011Q1

REPORT INFORMATION
  Report Type: 
  Country: None (occurrence: None)
  Receive Date: 20110303
  Receipt Date: 20110223
  Transmission Date: 20110831
  Serious: Yes (Hospitalization)
  Sender: FDA-Public Use
  Company Number: A0916201A

PATIENT
  Sex: Female

DRUGS (2)
  1. TYKERB [Suspect]
     Dosage: 250MG UNKNOWN
     Route: 065
  2. XELODA [Suspect]
     Route: 065

REACTIONS (1)
  - HOSPITALISATION [None]
